FAERS Safety Report 7387184-0 (Version None)
Quarter: 2011Q1

REPORT INFORMATION
  Report Type: 
  Country: None (occurrence: None)
  Receive Date: 20110331
  Receipt Date: 20110324
  Transmission Date: 20110831
  Serious: Yes (Hospitalization)
  Sender: FDA-Public Use
  Company Number: B0708123A

PATIENT
  Sex: Female

DRUGS (10)
  1. BETABLOCKER [Concomitant]
     Dates: start: 20110201
  2. LEVOTHYROX [Concomitant]
  3. ZELITREX [Suspect]
     Indication: PROPHYLAXIS
     Dosage: 500MG PER DAY
     Route: 048
     Dates: start: 20100101, end: 20110101
  4. FLUDARABINE [Concomitant]
     Indication: LYMPHOMA
     Route: 065
     Dates: start: 20100101, end: 20100601
  5. WELLVONE [Suspect]
     Indication: PROPHYLAXIS
     Dosage: 750MG TWICE PER DAY
     Route: 048
     Dates: start: 20101001, end: 20110101
  6. COSOPT [Concomitant]
     Indication: GLAUCOMA
     Route: 047
     Dates: start: 20100701, end: 20110210
  7. CYCLOPHOSPHAMIDE [Concomitant]
     Indication: LYMPHOMA
     Route: 042
     Dates: start: 20100101, end: 20100601
  8. BACTRIM [Concomitant]
     Indication: PROPHYLAXIS
     Route: 048
     Dates: start: 20100101, end: 20101001
  9. SPECIAFOLDINE [Concomitant]
  10. MABTHERA [Suspect]
     Indication: LYMPHOMA
     Dosage: 600MG CYCLIC
     Route: 042
     Dates: start: 20100101, end: 20100601

REACTIONS (8)
  - INFLUENZA [None]
  - FEBRILE NEUTROPENIA [None]
  - ASTHENIA [None]
  - RETICULOCYTE COUNT DECREASED [None]
  - AGRANULOCYTOSIS [None]
  - PYREXIA [None]
  - INFLAMMATION [None]
  - ANAEMIA MACROCYTIC [None]
